FAERS Safety Report 18900238 (Version 1)
Quarter: 2021Q1

REPORT INFORMATION
  Report Type: Spontaneous
  Country: US (occurrence: US)
  Receive Date: 20210217
  Receipt Date: 20210217
  Transmission Date: 20210420
  Serious: Yes (Death, Other)
  Sender: FDA-Public Use
  Company Number: US-AMGEN-USASP2021022228

PATIENT

DRUGS (3)
  1. SIROLIMUS. [Concomitant]
     Active Substance: SIROLIMUS
  2. FILGRASTIM [Suspect]
     Active Substance: FILGRASTIM
     Indication: HAEMATOPOIETIC STEM CELL MOBILISATION
     Dosage: UNK
     Route: 065
  3. ALEMTUZUMAB [Concomitant]
     Active Substance: ALEMTUZUMAB
     Dosage: 1 MILLIGRAM/KILOGRAM, QD (OVER FIVE DAYS)

REACTIONS (14)
  - Sepsis [Fatal]
  - Sickle cell disease [Fatal]
  - Cytomegalovirus infection [Unknown]
  - Chronic myeloid leukaemia [Unknown]
  - Bone marrow failure [Fatal]
  - Transplant failure [Fatal]
  - Polyomavirus viraemia [Unknown]
  - Death [Fatal]
  - Haemorrhage intracranial [Fatal]
  - Myelodysplastic syndrome [Fatal]
  - Herpes simplex reactivation [Unknown]
  - Epstein-Barr virus infection [Unknown]
  - Acute chest syndrome [Fatal]
  - Graft versus host disease in skin [Recovered/Resolved]
